FAERS Safety Report 7683078-1 (Version None)
Quarter: 2011Q3

REPORT INFORMATION
  Report Type: 
  Country: None (occurrence: None)
  Receive Date: 20110815
  Receipt Date: 20110804
  Transmission Date: 20111222
  Serious: Yes (Other)
  Sender: FDA-Public Use
  Company Number: BR-JNJFOC-20110803536

PATIENT
  Age: 47 Year
  Sex: Female

DRUGS (2)
  1. REMICADE [Suspect]
     Indication: RHEUMATOID ARTHRITIS
     Route: 042
     Dates: start: 20100303
  2. ANTI-INFLAMMATORY [Concomitant]

REACTIONS (9)
  - ATROPHY [None]
  - LUNG NEOPLASM [None]
  - ALOPECIA [None]
  - APHASIA [None]
  - NAUSEA [None]
  - FATIGUE [None]
  - EATING DISORDER [None]
  - SWELLING [None]
  - PAIN [None]
